FAERS Safety Report 9531569 (Version 1)
Quarter: 2013Q3

REPORT INFORMATION
  Report Type: Spontaneous
  Country: FR (occurrence: FR)
  Receive Date: 20130918
  Receipt Date: 20130918
  Transmission Date: 20140515
  Serious: Yes (Death, Other)
  Sender: FDA-Public Use
  Company Number: FR-PFIZER INC-2013267394

PATIENT
  Age: 89 Year
  Sex: Female

DRUGS (3)
  1. TRIATEC [Suspect]
     Indication: HYPERTENSION
     Dosage: 1.25 MG DAILY
     Route: 048
     Dates: end: 20130820
  2. ASPEGIC [Suspect]
     Indication: VASCULAR OPERATION
     Dosage: 100 MG, DAILY
     Route: 048
     Dates: end: 20130820
  3. CRESTOR [Concomitant]
     Indication: DYSLIPIDAEMIA
     Dosage: UNK
     Dates: end: 20130820

REACTIONS (2)
  - Subdural haematoma [Fatal]
  - Fall [Unknown]
